FAERS Safety Report 15660349 (Version 4)
Quarter: 2019Q1

REPORT INFORMATION
  Report Type: Spontaneous
  Country: US (occurrence: US)
  Receive Date: 20181127
  Receipt Date: 20190114
  Transmission Date: 20190417
  Serious: Yes (Hospitalization, Other)
  Sender: FDA-Public Use
  Company Number: US-GLAXOSMITHKLINE-US2018210055

PATIENT
  Age: 88 Year
  Sex: Female

DRUGS (2)
  1. ADVAIR DISKUS [Suspect]
     Active Substance: FLUTICASONE PROPIONATE\SALMETEROL XINAFOATE
     Indication: DYSPNOEA
     Dosage: UNK PUFF(S), UNK
     Route: 055
  2. ADVAIR DISKUS [Suspect]
     Active Substance: FLUTICASONE PROPIONATE\SALMETEROL XINAFOATE
     Indication: CHRONIC OBSTRUCTIVE PULMONARY DISEASE

REACTIONS (16)
  - Product dose omission [Unknown]
  - Surgery [Unknown]
  - Gallbladder enlargement [Unknown]
  - Cholecystectomy [Unknown]
  - Colectomy [Unknown]
  - Arthritis [Unknown]
  - Dyspnoea [Unknown]
  - Malaise [Unknown]
  - Diverticulitis [Unknown]
  - Dyspepsia [Unknown]
  - Underdose [Unknown]
  - Cholelithiasis [Unknown]
  - Off label use [Unknown]
  - Sleep disorder [Unknown]
  - Syncope [Unknown]
  - Gait disturbance [Unknown]

NARRATIVE: CASE EVENT DATE: 201805
